FAERS Safety Report 9298863 (Version 1)
Quarter: 2013Q2

REPORT INFORMATION
  Report Type: Spontaneous
  Country: US (occurrence: US)
  Receive Date: 20130520
  Receipt Date: 20130520
  Transmission Date: 20140414
  Serious: No
  Sender: FDA-Public Use
  Company Number: US-SANOFI-AVENTIS-2012SA027115

PATIENT
  Age: 71 Year
  Sex: Female
  Weight: 82 kg

DRUGS (4)
  1. APIDRA [Suspect]
     Indication: BLOOD GLUCOSE ABNORMAL
     Dosage: DOSE:2 UNIT(S)
     Route: 058
     Dates: start: 20111201, end: 20111208
  2. PAROXETINE [Concomitant]
  3. LEVEMIR INSULIN [Concomitant]
  4. METFORMIN [Concomitant]

REACTIONS (3)
  - Muscle spasms [Recovered/Resolved]
  - Fatigue [Recovered/Resolved]
  - Blood glucose increased [Unknown]
